FAERS Safety Report 23623256 (Version 1)
Quarter: 2024Q1

REPORT INFORMATION
  Report Type: Spontaneous
  Country: US (occurrence: None)
  Receive Date: 20240312
  Receipt Date: 20240312
  Transmission Date: 20240410
  Serious: Yes (Hospitalization)
  Sender: FDA-Public Use
  Company Number: None

PATIENT
  Sex: Female

DRUGS (1)
  1. BENLYSTA [Suspect]
     Active Substance: BELIMUMAB
     Indication: Systemic lupus erythematosus
     Dosage: FREQUENCY : WEEKLY;?
     Route: 058
     Dates: start: 202311

REACTIONS (6)
  - Condition aggravated [None]
  - Systemic lupus erythematosus [None]
  - Peripheral swelling [None]
  - Abdominal pain upper [None]
  - Ovarian mass [None]
  - Therapy interrupted [None]
